FAERS Safety Report 12548560 (Version 1)
Quarter: 2016Q3

REPORT INFORMATION
  Report Type: Spontaneous
  Country: US (occurrence: US)
  Receive Date: 20160712
  Receipt Date: 20160712
  Transmission Date: 20161109
  Serious: No
  Sender: FDA-Public Use
  Company Number: US-B.I. PHARMACEUTICALS,INC./RIDGEFIELD-2016-BI-42187BP

PATIENT
  Age: 62 Year
  Sex: Male
  Weight: 88.45 kg

DRUGS (5)
  1. CELEBREX [Concomitant]
     Active Substance: CELECOXIB
     Indication: ARTHRITIS
     Dosage: 400 MG
     Route: 048
  2. CELEBREX [Concomitant]
     Active Substance: CELECOXIB
     Indication: FIBROMYALGIA
  3. JARDIANCE [Suspect]
     Active Substance: EMPAGLIFLOZIN
     Indication: DIABETES MELLITUS
     Dosage: 25 MG
     Route: 048
     Dates: start: 20160607
  4. ALTACE [Concomitant]
     Active Substance: RAMIPRIL
     Indication: PRODUCT USED FOR UNKNOWN INDICATION
     Dosage: 10 MG
     Route: 048
  5. METOPROLOL. [Concomitant]
     Active Substance: METOPROLOL
     Indication: ARRHYTHMIA
     Dosage: 100 MG
     Route: 048

REACTIONS (3)
  - Increased appetite [Not Recovered/Not Resolved]
  - Abnormal loss of weight [Not Recovered/Not Resolved]
  - Energy increased [Not Recovered/Not Resolved]

NARRATIVE: CASE EVENT DATE: 20160607
